FAERS Safety Report 18466400 (Version 4)
Quarter: 2021Q2

REPORT INFORMATION
  Report Type: Report from Study
  Country: CO (occurrence: CO)
  Receive Date: 20201105
  Receipt Date: 20210513
  Transmission Date: 20210717
  Serious: Yes (Death, Hospitalization, Other)
  Sender: FDA-Public Use
  Company Number: CO-ASTELLAS-2020US035590

PATIENT
  Age: 56 Year
  Sex: Female

DRUGS (4)
  1. PREDNISOLONE. [Concomitant]
     Active Substance: PREDNISOLONE
     Indication: PRODUCT USED FOR UNKNOWN INDICATION
     Dosage: UNK UNK, UNKNOWN FREQ.
     Route: 065
  2. TACROLIMUS. [Suspect]
     Active Substance: TACROLIMUS
     Indication: RENAL TRANSPLANT
     Route: 048
     Dates: start: 20200613
  3. CALCITRIOL;CALCIUM [Concomitant]
     Indication: PRODUCT USED FOR UNKNOWN INDICATION
     Dosage: UNK UNK, UNKNOWN FREQ.
     Route: 065
  4. MYCOPHENOLATE [Concomitant]
     Active Substance: MYCOPHENOLIC ACID
     Indication: PRODUCT USED FOR UNKNOWN INDICATION
     Dosage: UNK UNK, UNKNOWN FREQ.
     Route: 065

REACTIONS (10)
  - Fatigue [Not Recovered/Not Resolved]
  - Chest discomfort [Not Recovered/Not Resolved]
  - Urinary tract infection [Recovering/Resolving]
  - Cardiac disorder [Unknown]
  - Oropharyngeal pain [Unknown]
  - Arrhythmia [Not Recovered/Not Resolved]
  - Pyrexia [Unknown]
  - COVID-19 [Fatal]
  - Palpitations [Not Recovered/Not Resolved]
  - Venous thrombosis [Unknown]

NARRATIVE: CASE EVENT DATE: 202005
